FAERS Safety Report 18072709 (Version 1)
Quarter: 2020Q3

REPORT INFORMATION
  Report Type: Spontaneous
  Country: US (occurrence: US)
  Receive Date: 20200727
  Receipt Date: 20200727
  Transmission Date: 20201103
  Serious: Yes (Other)
  Sender: FDA-Public Use
  Company Number: None

PATIENT
  Age: 52 Year
  Sex: Female

DRUGS (12)
  1. ASPIRIN. [Concomitant]
     Active Substance: ASPIRIN
  2. ATORVASTATIN [Concomitant]
     Active Substance: ATORVASTATIN
  3. LORATADINE. [Concomitant]
     Active Substance: LORATADINE
  4. LUPRON [Suspect]
     Active Substance: LEUPROLIDE ACETATE
     Indication: UTERINE LEIOMYOMA
     Dosage: ?          OTHER FREQUENCY:Q3 MONTHS;OTHER ROUTE:IN THE MUSCLE?
     Dates: start: 20190605
  5. TRANSDERMAL CRE [Concomitant]
  6. NORETHIN ACE [Concomitant]
  7. TRAMADOL. [Concomitant]
     Active Substance: TRAMADOL
  8. ACID CONTROL [Concomitant]
     Active Substance: FAMOTIDINE
  9. VITMAIN D [Concomitant]
  10. FAMOTIDINE. [Concomitant]
     Active Substance: FAMOTIDINE
  11. LISINOPRIL. [Concomitant]
     Active Substance: LISINOPRIL
  12. GABAPENTIN. [Concomitant]
     Active Substance: GABAPENTIN

REACTIONS (1)
  - Spinal operation [None]

NARRATIVE: CASE EVENT DATE: 20200717
